FAERS Safety Report 12009665 (Version 2)
Quarter: 2016Q1

REPORT INFORMATION
  Report Type: Spontaneous
  Country: US (occurrence: US)
  Receive Date: 20160205
  Receipt Date: 20160211
  Transmission Date: 20160526
  Serious: No
  Sender: FDA-Public Use
  Company Number: US-PFIZER INC-2016067659

PATIENT
  Age: 65 Year
  Sex: Female
  Weight: 66 kg

DRUGS (2)
  1. CYTOMEL [Suspect]
     Active Substance: LIOTHYRONINE SODIUM
     Indication: THYROXINE DECREASED
     Dosage: 10 MG, 1X/DAY
     Dates: start: 1999, end: 20160129
  2. SYNTHROID [Suspect]
     Active Substance: LEVOTHYROXINE SODIUM
     Indication: THYROXINE DECREASED

REACTIONS (4)
  - Fatigue [Unknown]
  - Malaise [Unknown]
  - Thinking abnormal [Unknown]
  - Asthenia [Unknown]

NARRATIVE: CASE EVENT DATE: 20160131
